FAERS Safety Report 9574949 (Version 1)
Quarter: 2013Q4

REPORT INFORMATION
  Report Type: Spontaneous
  Country: SE (occurrence: SE)
  Receive Date: 20131001
  Receipt Date: 20131001
  Transmission Date: 20140711
  Serious: Yes (Death)
  Sender: FDA-Public Use
  Company Number: SE-UCBSA-098568

PATIENT
  Sex: Male

DRUGS (3)
  1. KEPPRA [Suspect]
     Dosage: 750 MG/DAY
     Route: 042
  2. KEPPRA [Suspect]
  3. KEPPRA [Suspect]
     Dosage: ORAL SOLUTION INTRAVENOUSLY

REACTIONS (2)
  - Death [Fatal]
  - Medication error [Unknown]
